FAERS Safety Report 7505565-9 (Version None)
Quarter: 2011Q2

REPORT INFORMATION
  Report Type: 
  Country: None (occurrence: None)
  Receive Date: 20110526
  Receipt Date: 20110516
  Transmission Date: 20111010
  Serious: Yes (Other)
  Sender: FDA-Public Use
  Company Number: MY-PFIZER INC-2011109396

PATIENT
  Age: 64 Year
  Sex: Female

DRUGS (3)
  1. SULFASALAZINE [Suspect]
     Indication: RHEUMATOID ARTHRITIS
     Dosage: 2 G DAILY
     Route: 048
     Dates: start: 20100601
  2. RANITIDINE [Concomitant]
     Dosage: UNK
  3. MELOXICAM [Concomitant]
     Dosage: UNK

REACTIONS (5)
  - HEADACHE [None]
  - ABDOMINAL DISTENSION [None]
  - TACHYCARDIA [None]
  - ABDOMINAL PAIN [None]
  - RASH [None]
